FAERS Safety Report 21156391 (Version 1)
Quarter: 2022Q3

REPORT INFORMATION
  Report Type: Spontaneous
  Country: US (occurrence: US)
  Receive Date: 20220801
  Receipt Date: 20220801
  Transmission Date: 20221026
  Serious: No
  Sender: FDA-Public Use
  Company Number: US-PADAGIS-2022PAD00255

PATIENT

DRUGS (10)
  1. EVAMIST [Suspect]
     Active Substance: ESTRADIOL
     Indication: Oestrogen replacement therapy
     Dosage: UNK, QD
     Route: 065
  2. EVAMIST [Suspect]
     Active Substance: ESTRADIOL
     Indication: Hot flush
  3. PROMETRIUM [Concomitant]
     Active Substance: PROGESTERONE
     Indication: Product used for unknown indication
     Dosage: UNK
     Route: 065
  4. SYNTHROID [Concomitant]
     Active Substance: LEVOTHYROXINE SODIUM
     Indication: Hypothyroidism
     Dosage: UNK
     Route: 065
  5. NEURONTIN [Concomitant]
     Active Substance: GABAPENTIN
     Indication: Back pain
     Dosage: UNK
     Route: 065
  6. CEPHALEXIN [Concomitant]
     Active Substance: CEPHALEXIN
     Indication: Urinary tract infection
     Dosage: UNK, QD
     Route: 065
  7. PRILOSEC [Concomitant]
     Active Substance: OMEPRAZOLE MAGNESIUM
     Indication: Dyspepsia
     Dosage: UNK, QD
     Route: 065
  8. TRAMADOL [Concomitant]
     Active Substance: TRAMADOL
     Indication: Back pain
     Dosage: UNK, PRN (AS NEEDED)
     Route: 065
  9. CITRICAL [CALCIUM CARBONATE] [Concomitant]
     Indication: Supplementation therapy
     Dosage: UNK
     Route: 065
  10. VIT D [VITAMIN D NOS] [Concomitant]
     Indication: Supplementation therapy
     Dosage: UNK
     Route: 065

REACTIONS (1)
  - Intentional underdose [Unknown]
